FAERS Safety Report 14339139 (Version 16)
Quarter: 2020Q3

REPORT INFORMATION
  Report Type: Spontaneous
  Country: DE (occurrence: DE)
  Receive Date: 20171230
  Receipt Date: 20180926
  Transmission Date: 20201104
  Serious: Yes (Life-Threatening, Hospitalization, Other)
  Sender: FDA-Public Use
  Company Number: DE-JNJFOC-20171223112

PATIENT
  Age: 44 Year
  Sex: Male

DRUGS (9)
  1. IBUPROFEN. [Suspect]
     Active Substance: IBUPROFEN
     Indication: ARTHRALGIA
     Dosage: AS NEEDED, 1 DAY PRN
     Route: 048
  2. ALLOPURINOL. [Suspect]
     Active Substance: ALLOPURINOL
     Indication: ARTHRALGIA
     Dosage: LONG?TERM THERAPY
     Route: 065
  3. PREDNISOLONE. [Suspect]
     Active Substance: PREDNISOLONE
     Indication: TOXIC EPIDERMAL NECROLYSIS
     Dosage: INITIAL: (1MG/KG BW/DIE), DOSE INCREASED TO 3MG/KG BW
     Route: 042
  4. IBUPROFEN. [Suspect]
     Active Substance: IBUPROFEN
     Route: 048
  5. ETORICOXIB. [Suspect]
     Active Substance: ETORICOXIB
     Indication: ARTHRALGIA
     Route: 048
  6. ALLOPURINOL. [Suspect]
     Active Substance: ALLOPURINOL
     Indication: HYPERURICAEMIA
     Dosage: LONG?TERM THERAPY
     Route: 048
  7. ETORICOXIB. [Suspect]
     Active Substance: ETORICOXIB
     Indication: HYPERURICAEMIA
     Route: 065
  8. IBUPROFEN. [Suspect]
     Active Substance: IBUPROFEN
     Indication: HYPERURICAEMIA
     Route: 065
  9. IBUPROFEN. [Suspect]
     Active Substance: IBUPROFEN
     Route: 065

REACTIONS (24)
  - Blister [Recovered/Resolved]
  - Drug ineffective [Unknown]
  - No adverse event [Unknown]
  - Conjunctivitis [Recovered/Resolved]
  - Respiratory fatigue [Recovered/Resolved]
  - Pruritus [Recovered/Resolved]
  - Skin exfoliation [Recovered/Resolved]
  - Erythema [Recovered/Resolved]
  - Renal failure [Recovered/Resolved]
  - Dehydration [Recovered/Resolved]
  - Pain [Recovered/Resolved]
  - Toxic epidermal necrolysis [Recovered/Resolved]
  - Oral mucosa erosion [Recovered/Resolved]
  - Intensive care unit acquired weakness [Recovered/Resolved]
  - Prerenal failure [Recovered/Resolved]
  - Dysphagia [Recovered/Resolved]
  - Mucosal necrosis [Recovered/Resolved]
  - Rash [Recovered/Resolved]
  - Coating in mouth [Recovered/Resolved]
  - Enterococcal infection [Recovered/Resolved]
  - Lip erosion [Recovered/Resolved]
  - Skin hyperpigmentation [Recovered/Resolved]
  - Scab [Recovered/Resolved]
  - Staphylococcal infection [Recovered/Resolved]
